FAERS Safety Report 5012438-2 (Version None)
Quarter: 2006Q2

REPORT INFORMATION
  Report Type: 
  Country: None (occurrence: None)
  Receive Date: 20060526
  Receipt Date: 20060327
  Transmission Date: 20061013
  Serious: Yes (Life-Threatening, Hospitalization)
  Sender: FDA-Public Use
  Company Number: US-BOEHRINGER INGELHEIM PHARMACEUTICALS, INC.-2006-BP-03473BP

PATIENT
  Sex: Female
  Weight: 72.57 kg

DRUGS (6)
  1. MIRAPEX [Suspect]
     Indication: RESTLESS LEGS SYNDROME
     Route: 048
     Dates: start: 20000101, end: 20060321
  2. MIRAPEX [Suspect]
     Route: 048
     Dates: end: 20060101
  3. MICARDIS [Concomitant]
  4. ESTROGENS SOL/INJ [Concomitant]
  5. VICODIN [Concomitant]
     Dates: start: 20050723
  6. CLONAZEPAM [Concomitant]

REACTIONS (4)
  - CONTUSION [None]
  - LOSS OF CONSCIOUSNESS [None]
  - ROAD TRAFFIC ACCIDENT [None]
  - SOMNOLENCE [None]
